FAERS Safety Report 12610761 (Version 1)
Quarter: 2016Q3

REPORT INFORMATION
  Report Type: Spontaneous
  Country: JP (occurrence: JP)
  Receive Date: 20160801
  Receipt Date: 20160801
  Transmission Date: 20161109
  Serious: Yes (Other)
  Sender: FDA-Public Use
  Company Number: JP-JNJFOC-20160718379

PATIENT

DRUGS (10)
  1. RANIMUSTINE [Concomitant]
     Active Substance: RANIMUSTINE
     Route: 065
  2. CYCLOPHOSPHAMIDE. [Suspect]
     Active Substance: CYCLOPHOSPHAMIDE
     Indication: DIFFUSE LARGE B-CELL LYMPHOMA
     Route: 065
  3. ETOPOSIDE. [Suspect]
     Active Substance: ETOPOSIDE
     Indication: DIFFUSE LARGE B-CELL LYMPHOMA
     Route: 065
  4. CYCLOPHOSPHAMIDE. [Suspect]
     Active Substance: CYCLOPHOSPHAMIDE
     Indication: DIFFUSE LARGE B-CELL LYMPHOMA
     Route: 065
  5. VINCRISTINE [Suspect]
     Active Substance: VINCRISTINE
     Indication: DIFFUSE LARGE B-CELL LYMPHOMA
     Route: 065
  6. PREDNISOLONE. [Suspect]
     Active Substance: PREDNISOLONE
     Indication: DIFFUSE LARGE B-CELL LYMPHOMA
     Route: 065
  7. DOXORUBICIN [Suspect]
     Active Substance: DOXORUBICIN
     Indication: DIFFUSE LARGE B-CELL LYMPHOMA
     Route: 065
  8. CARBOPLATIN. [Concomitant]
     Active Substance: CARBOPLATIN
     Route: 065
  9. RITUXIMAB [Suspect]
     Active Substance: RITUXIMAB
     Indication: DIFFUSE LARGE B-CELL LYMPHOMA
     Route: 065
  10. G-CSF [Concomitant]
     Active Substance: GRANULOCYTE COLONY-STIMULATING FACTOR NOS
     Route: 065

REACTIONS (30)
  - Deep vein thrombosis [Unknown]
  - Vomiting [Unknown]
  - Blood bilirubin increased [Unknown]
  - Skin disorder [Unknown]
  - Device related infection [Unknown]
  - Herpes zoster [Unknown]
  - Liver disorder [Unknown]
  - Stomatitis [Unknown]
  - Infection [Unknown]
  - Aspartate aminotransferase increased [Unknown]
  - Gastric varices [Unknown]
  - Enterovesical fistula [Unknown]
  - Lung disorder [Unknown]
  - Gingivitis [Unknown]
  - Diabetes mellitus [Unknown]
  - Hypertension [Unknown]
  - Dermatitis [Unknown]
  - Nausea [Unknown]
  - Adrenal disorder [Unknown]
  - Bacterial infection [Unknown]
  - Hypotension [Unknown]
  - Diarrhoea [Unknown]
  - Tachycardia [Unknown]
  - Cystitis haemorrhagic [Unknown]
  - Alanine aminotransferase increased [Unknown]
  - Hypoxia [Unknown]
  - Febrile neutropenia [Recovering/Resolving]
  - Rash [Unknown]
  - Abdominal pain [Unknown]
  - Neuropathy peripheral [Unknown]
